FAERS Safety Report 9669881 (Version 2)
Quarter: 2013Q4

REPORT INFORMATION
  Report Type: Report from Study
  Country: KR (occurrence: KR)
  Receive Date: 20131105
  Receipt Date: 20131213
  Transmission Date: 20140711
  Serious: No
  Sender: FDA-Public Use
  Company Number: PHHY2013KR124105

PATIENT
  Age: 32 Year
  Sex: Male

DRUGS (27)
  1. AMN107 [Suspect]
     Indication: CHRONIC MYELOID LEUKAEMIA
     Dosage: 800 MG, PER DAY
     Route: 048
     Dates: start: 20120802, end: 20120813
  2. AMN107 [Suspect]
     Dosage: 400 MG, PER DAY
     Route: 048
     Dates: start: 20120820, end: 20120917
  3. AMN107 [Suspect]
     Dosage: 800 MG, PER DAY
     Route: 048
     Dates: start: 20120924, end: 20121016
  4. AMN107 [Suspect]
     Dosage: 400 MG, PER DAY
     Route: 048
     Dates: start: 20121017, end: 20121030
  5. AMN107 [Suspect]
     Dosage: 400 MG, PER DAY
     Route: 048
     Dates: start: 20121031
  6. BOEHMITE [Concomitant]
     Indication: GASTRITIS
     Route: 048
     Dates: start: 20130917, end: 20130923
  7. CEFTAZIDIME [Concomitant]
     Indication: ANTIBIOTIC THERAPY
     Dosage: 6000 MG, UNK
     Route: 042
     Dates: start: 20130924, end: 20130926
  8. DOMPERIDONE [Concomitant]
     Indication: ABDOMINAL PAIN
     Dosage: 30 MG, UNK
     Route: 048
     Dates: start: 20120916, end: 20120916
  9. ESOMEPRAZOLE [Concomitant]
     Indication: GASTROINTESTINAL DISORDER
     Dosage: 40 MG, UNK
     Route: 042
     Dates: start: 20120917, end: 20120917
  10. FAMOTIDINE [Concomitant]
     Indication: ABDOMINAL PAIN
     Dosage: 40 MG, UNK
     Route: 042
     Dates: start: 20120917, end: 20120919
  11. GRASIN [Concomitant]
     Indication: NEUTROPENIA
     Dosage: 300 UG, UNK
     Route: 058
     Dates: start: 20120813, end: 20120813
  12. ITOPRIDE [Concomitant]
     Indication: ABDOMINAL PAIN
     Dosage: 150 MG, UNK
     Route: 048
     Dates: start: 20120918, end: 20120919
  13. LACTULOSE [Concomitant]
     Indication: CONSTIPATION
     Dosage: 45 ML, UNK
     Route: 048
     Dates: start: 20120916, end: 20120916
  14. LACTULOSE [Concomitant]
     Dosage: 90 ML, UNK
     Route: 048
     Dates: start: 20120925, end: 20120926
  15. LANSOPRAZOLE [Concomitant]
     Indication: PEPTIC ULCER
     Dosage: 60 MG, UNK
     Route: 048
     Dates: start: 20120919, end: 20121016
  16. LEVOFLOXACIN [Concomitant]
     Indication: UPPER RESPIRATORY TRACT INFECTION
     Dosage: 500 MG, UNK
     Route: 048
     Dates: start: 20120820, end: 20120824
  17. MAGNESIUM OXIDE [Concomitant]
     Indication: CONSTIPATION
     Dosage: 3000 MG, UNK
     Route: 048
     Dates: start: 20120918, end: 20120926
  18. METOCLOPRAMIDE HCL [Concomitant]
     Indication: NAUSEA
     Dosage: 60 MG, UNK
     Route: 042
     Dates: start: 20120918, end: 20120918
  19. METOCLOPRAMIDE HCL [Concomitant]
     Dosage: 60 MG, UNK
     Route: 048
     Dates: start: 20120923, end: 20130926
  20. MORPHINE HCL [Concomitant]
     Indication: ABDOMINAL PAIN
     Dosage: 5 MG, UNK
     Route: 042
     Dates: start: 20120916, end: 20120918
  21. MOSAPRIDE [Concomitant]
     Indication: DYSPEPSIA
     Dosage: 15 MG, UNK
     Route: 048
     Dates: start: 20120926, end: 20121002
  22. SCOPOLAMINE [Concomitant]
     Indication: ABDOMINAL PAIN
     Dosage: 20 MG, UNK
     Route: 042
     Dates: start: 20120918, end: 20120918
  23. SODIUM ALGINATE [Concomitant]
     Indication: GASTROINTESTINAL MUCOSAL DISORDER
     Dosage: 120 ML, UNK
     Route: 048
     Dates: start: 20120917, end: 20120923
  24. TEPRENONE [Concomitant]
     Indication: PEPTIC ULCER
     Dosage: 150 MG, UNK
     Route: 048
     Dates: start: 20120916, end: 20120917
  25. TRAMADOL HCL [Concomitant]
     Indication: ABDOMINAL PAIN
     Dosage: 50 MG, UNK
     Route: 042
     Dates: start: 20120916, end: 20120924
  26. ULTRACET [Concomitant]
     Indication: PAIN
     Dosage: 2175 MG, UNK
     Route: 048
     Dates: start: 20120924
  27. ZALTOPROFEN [Concomitant]
     Indication: ABDOMINAL PAIN
     Dosage: 240 MG, UNK
     Route: 048
     Dates: start: 20120916, end: 20120917

REACTIONS (1)
  - Upper respiratory tract infection [Recovered/Resolved]
